FAERS Safety Report 5170323-X (Version None)
Quarter: 2006Q4

REPORT INFORMATION
  Report Type: 
  Country: None (occurrence: None)
  Receive Date: 20061204
  Receipt Date: 20061128
  Transmission Date: 20070319
  Serious: Yes (Hospitalization)
  Sender: FDA-Public Use
  Company Number: GB-2006-037071

PATIENT
  Age: 44 Year
  Sex: Female

DRUGS (1)
  1. MAGNEVIST [Suspect]
     Dosage: 10 ML, 1 DOSE
     Route: 042

REACTIONS (3)
  - DYSPHONIA [None]
  - MALAISE [None]
  - PRURITUS [None]
